FAERS Safety Report 9607877 (Version 1)
Quarter: 2013Q4

REPORT INFORMATION
  Report Type: Spontaneous
  Country: US (occurrence: None)
  Receive Date: 20131008
  Receipt Date: 20131008
  Transmission Date: 20140711
  Serious: Yes (Other)
  Sender: FDA-Public Use
  Company Number: None

PATIENT
  Age: 33 Year
  Sex: Female
  Weight: 53.98 kg

DRUGS (2)
  1. ESCITALOPRAM 20MG [Suspect]
     Indication: ANXIETY
     Dosage: 45 PILLS ONCE DAILY TAKEN BY MOUTH
     Route: 048
  2. ESCITALOPRAM 20MG [Suspect]
     Indication: DEPRESSION
     Dosage: 45 PILLS ONCE DAILY TAKEN BY MOUTH
     Route: 048

REACTIONS (2)
  - Migraine [None]
  - Product substitution issue [None]
